FAERS Safety Report 11181587 (Version 1)
Quarter: 2015Q2

REPORT INFORMATION
  Report Type: Spontaneous
  Country: US (occurrence: US)
  Receive Date: 20150611
  Receipt Date: 20150611
  Transmission Date: 20150821
  Serious: No
  Sender: FDA-Public Use
  Company Number: US-ASTELLAS-2015US013207

PATIENT
  Age: 79 Year
  Sex: Male

DRUGS (2)
  1. XTANDI [Suspect]
     Active Substance: ENZALUTAMIDE
     Indication: HORMONE-REFRACTORY PROSTATE CANCER
     Route: 048
     Dates: start: 20150401, end: 2015
  2. XTANDI [Suspect]
     Active Substance: ENZALUTAMIDE
     Dosage: 2 DF (2 PILLS), ONCE DAILY
     Route: 048
     Dates: start: 2015

REACTIONS (3)
  - Pain [Recovering/Resolving]
  - Pain in extremity [Recovering/Resolving]
  - Underdose [Unknown]

NARRATIVE: CASE EVENT DATE: 2015
